FAERS Safety Report 19500129 (Version 5)
Quarter: 2021Q4

REPORT INFORMATION
  Report Type: Report from Study
  Country: JP (occurrence: JP)
  Receive Date: 20210706
  Receipt Date: 20211228
  Transmission Date: 20220303
  Serious: Yes (Death, Other)
  Sender: FDA-Public Use
  Company Number: JP-TAKEDA-2021TJP046965

PATIENT
  Age: 78 Year
  Sex: Male
  Weight: 60 kg

DRUGS (8)
  1. LEUPLIN [Suspect]
     Active Substance: LEUPROLIDE ACETATE
     Indication: Bulbospinal muscular atrophy congenital
     Dosage: 11.25 MILLIGRAM, Q3MONTHS
     Route: 058
     Dates: start: 20190806, end: 20200205
  2. LYRICA [Concomitant]
     Active Substance: PREGABALIN
     Indication: Bulbospinal muscular atrophy congenital
     Dosage: 300 MILLIGRAM
     Route: 065
     Dates: end: 20210619
  3. ROSUVASTATIN CALCIUM [Concomitant]
     Active Substance: ROSUVASTATIN CALCIUM
     Indication: Product used for unknown indication
     Dosage: 2.5 MILLIGRAM
     Route: 065
     Dates: end: 20210619
  4. AMBROXOL HYDROCHLORIDE [Concomitant]
     Active Substance: AMBROXOL HYDROCHLORIDE
     Indication: Bulbospinal muscular atrophy congenital
     Dosage: 45 MILLIGRAM
     Route: 065
     Dates: end: 20191029
  5. ELOBIXIBAT [Concomitant]
     Active Substance: ELOBIXIBAT
     Indication: Product used for unknown indication
     Dosage: 10 MILLIGRAM
     Route: 065
     Dates: start: 20190807, end: 20191029
  6. ELOBIXIBAT [Concomitant]
     Active Substance: ELOBIXIBAT
     Dosage: 15 MILLIGRAM
     Route: 065
     Dates: start: 20191030, end: 20210619
  7. CARBOCYSTEINE [Concomitant]
     Active Substance: CARBOCYSTEINE
     Indication: Bulbospinal muscular atrophy congenital
     Dosage: 1000 MILLIGRAM
     Route: 065
     Dates: start: 20191030, end: 20210619
  8. PRAMIEL [Concomitant]
     Indication: Product used for unknown indication
     Dosage: 5 MILLIGRAM
     Route: 065
     Dates: start: 20191029, end: 20210619

REACTIONS (8)
  - Urinary retention [Recovered/Resolved]
  - Pollakiuria [Recovered/Resolved]
  - Urinary incontinence [Recovered/Resolved]
  - Bulbospinal muscular atrophy congenital [Fatal]
  - Disease progression [Fatal]
  - Pneumonia [Fatal]
  - Electrolyte imbalance [Fatal]
  - Malnutrition [Fatal]

NARRATIVE: CASE EVENT DATE: 20200210
